FAERS Safety Report 16971574 (Version 1)
Quarter: 2019Q4

REPORT INFORMATION
  Report Type: Spontaneous
  Country: US (occurrence: US)
  Receive Date: 20191029
  Receipt Date: 20191029
  Transmission Date: 20200122
  Serious: Yes (Life-Threatening, Hospitalization)
  Sender: FDA-Public Use
  Company Number: US-TEVA-2019-US-1128796

PATIENT
  Age: 54 Year
  Sex: Male

DRUGS (1)
  1. CARBIDOPA-LEVODOPA [Suspect]
     Active Substance: CARBIDOPA\LEVODOPA
     Indication: PARKINSON^S DISEASE
     Dosage: DOSE: LEVODOPA 250MG/CARBIDOPA 25MG FIVE TIMES DAILY
     Route: 065

REACTIONS (7)
  - Parkinsonism hyperpyrexia syndrome [Recovering/Resolving]
  - Hypotension [Recovering/Resolving]
  - Psychomotor hyperactivity [Recovering/Resolving]
  - Hypoxia [Recovering/Resolving]
  - Withdrawal syndrome [Recovering/Resolving]
  - Myoclonus [Unknown]
  - Mental status changes [Unknown]
